FAERS Safety Report 24741314 (Version 1)
Quarter: 2024Q4

REPORT INFORMATION
  Report Type: Spontaneous
  Country: PL (occurrence: PL)
  Receive Date: 20241217
  Receipt Date: 20241217
  Transmission Date: 20250115
  Serious: Yes (Hospitalization)
  Sender: BEIGENE
  Company Number: PL-BEIGENE-BGN-2024-020277

PATIENT

DRUGS (1)
  1. BRUKINSA [Suspect]
     Active Substance: ZANUBRUTINIB
     Indication: Waldenstrom^s macroglobulinaemia

REACTIONS (2)
  - Genital haemorrhage [Unknown]
  - Pyrexia [Unknown]
